FAERS Safety Report 6334865-3 (Version None)
Quarter: 2009Q3

REPORT INFORMATION
  Report Type: 
  Country: None (occurrence: None)
  Receive Date: 20090828
  Receipt Date: 20090828
  Transmission Date: 20100115
  Serious: No
  Sender: FDA-Public Use
  Company Number: None

PATIENT
  Sex: Female
  Weight: 99.7913 kg

DRUGS (2)
  1. ALLOPURINOL [Suspect]
     Indication: GOUT
     Dosage: 300MG DAILY ORAL
     Route: 048
     Dates: start: 20090723, end: 20090806
  2. ALLOPURINOL [Suspect]
     Indication: PROPHYLAXIS
     Dosage: 300MG DAILY ORAL
     Route: 048
     Dates: start: 20090723, end: 20090806

REACTIONS (2)
  - ERYTHEMA [None]
  - RASH [None]
